FAERS Safety Report 14099217 (Version 1)
Quarter: 2017Q4

REPORT INFORMATION
  Report Type: Spontaneous
  Country: US (occurrence: US)
  Receive Date: 20171017
  Receipt Date: 20171017
  Transmission Date: 20180321
  Serious: Yes (Hospitalization, Other)
  Sender: FDA-Public Use
  Company Number: US-HERITAGE PHARMACEUTICALS-2017HTG00309

PATIENT
  Sex: Female
  Weight: 56.69 kg

DRUGS (5)
  1. DILTIAZEM. [Suspect]
     Active Substance: DILTIAZEM
     Dosage: UNK
  2. EFFEXOR [Suspect]
     Active Substance: VENLAFAXINE HYDROCHLORIDE
     Dosage: UNK
     Dates: end: 201709
  3. HYDRALAZINE HYDROCHLORIDE. [Suspect]
     Active Substance: HYDRALAZINE HYDROCHLORIDE
     Indication: ARRHYTHMIA
  4. FLECAINIDE [Suspect]
     Active Substance: FLECAINIDE
     Dosage: UNK
  5. HYDRALAZINE HYDROCHLORIDE. [Suspect]
     Active Substance: HYDRALAZINE HYDROCHLORIDE
     Indication: BLOOD PRESSURE INADEQUATELY CONTROLLED
     Dosage: 10 MG, 3X/DAY
     Route: 048

REACTIONS (4)
  - Hallucination, visual [Not Recovered/Not Resolved]
  - Visual impairment [Not Recovered/Not Resolved]
  - Arrhythmia [Unknown]
  - Visual field defect [Not Recovered/Not Resolved]
